FAERS Safety Report 5641855-2 (Version None)
Quarter: 2008Q1

REPORT INFORMATION
  Report Type: 
  Country: None (occurrence: None)
  Receive Date: 20080227
  Receipt Date: 20080226
  Transmission Date: 20080703
  Serious: No
  Sender: FDA-Public Use
  Company Number: US-BOEHRINGER INGELHEIM GMBH, GERMANY-2006-BP-09433BP

PATIENT
  Sex: Male

DRUGS (6)
  1. FLOMAX [Suspect]
     Indication: BENIGN PROSTATIC HYPERPLASIA
     Route: 048
     Dates: start: 20050101, end: 20071001
  2. TESTOSTERONE [Concomitant]
     Indication: LIBIDO DISORDER
     Dosage: 500 MG Q TWO WEEKS
     Dates: start: 19840101
  3. DIOVAN [Concomitant]
     Indication: HYPERTENSION
  4. TRIAMTERENE AND HYDROCHLOROTHIAZIDE [Concomitant]
     Indication: HYPERTENSION
  5. VYTORIN [Concomitant]
     Indication: HYPERCHOLESTEROLAEMIA
  6. SYNTHROID [Concomitant]
     Indication: HYPOTHYROIDISM

REACTIONS (4)
  - LIBIDO DECREASED [None]
  - RETROGRADE EJACULATION [None]
  - SEMEN VOLUME DECREASED [None]
  - SEXUAL DYSFUNCTION [None]
